FAERS Safety Report 9753402 (Version 2)
Quarter: 2013Q4

REPORT INFORMATION
  Report Type: Spontaneous
  Country: US (occurrence: US)
  Receive Date: 20131213
  Receipt Date: 20131213
  Transmission Date: 20140711
  Serious: Yes (Other)
  Sender: FDA-Public Use
  Company Number: US-TEVA-403174USA

PATIENT
  Sex: Female
  Weight: 89.44 kg

DRUGS (2)
  1. PARAGARD 380A [Suspect]
     Indication: CONTRACEPTION
     Route: 015
     Dates: start: 20121212, end: 20130503
  2. LABETALOL [Concomitant]
     Indication: HYPERTENSION
     Dosage: 200 MILLIGRAM DAILY;

REACTIONS (2)
  - Device dislocation [Recovered/Resolved]
  - Dyspareunia [Recovered/Resolved]
